FAERS Safety Report 8007454-2 (Version None)
Quarter: 2011Q4

REPORT INFORMATION
  Report Type: 
  Country: None (occurrence: None)
  Receive Date: 20111227
  Receipt Date: 20111221
  Transmission Date: 20120403
  Serious: Yes (Hospitalization, Congenital Anomaly, Other)
  Sender: FDA-Public Use
  Company Number: US-PFIZER INC-2010128168

PATIENT
  Sex: Female
  Weight: 3 kg

DRUGS (1)
  1. ZOLOFT [Suspect]
     Dosage: 50 MG, UNK
     Route: 064
     Dates: start: 20051209

REACTIONS (11)
  - VENTRICULAR SEPTAL DEFECT [None]
  - ATRIAL SEPTAL DEFECT [None]
  - RIGHT VENTRICULAR HYPERTROPHY [None]
  - TRICUSPID VALVE INCOMPETENCE [None]
  - CARDIOMEGALY [None]
  - PATENT DUCTUS ARTERIOSUS [None]
  - CARDIAC FAILURE CONGESTIVE [None]
  - FOETAL EXPOSURE DURING PREGNANCY [None]
  - FAILURE TO THRIVE [None]
  - MYOCARDIAL CALCIFICATION [None]
  - JAUNDICE NEONATAL [None]
